FAERS Safety Report 24827955 (Version 1)
Quarter: 2025Q1

REPORT INFORMATION
  Report Type: Report from Study
  Country: US (occurrence: US)
  Receive Date: 20250109
  Receipt Date: 20250109
  Transmission Date: 20250409
  Serious: Yes (Hospitalization, Other)
  Sender: GILEAD
  Company Number: US-GILEAD-2025-0699057

PATIENT
  Sex: Female

DRUGS (26)
  1. AZTREONAM LYSINE [Suspect]
     Active Substance: AZTREONAM LYSINE
     Indication: Cystic fibrosis lung
     Route: 055
  2. PREVYMIS [Concomitant]
     Active Substance: LETERMOVIR
  3. ATOVAQUONE [Concomitant]
     Active Substance: ATOVAQUONE
  4. HUMALOG [Concomitant]
     Active Substance: INSULIN LISPRO
  5. VALCYTE [Concomitant]
     Active Substance: VALGANCICLOVIR HYDROCHLORIDE
  6. CELLCEPT [Concomitant]
     Active Substance: MYCOPHENOLATE MOFETIL
  7. SINGULAIR [Concomitant]
     Active Substance: MONTELUKAST SODIUM
  8. LIPITOR [Concomitant]
     Active Substance: ATORVASTATIN CALCIUM
  9. LANTUS [Concomitant]
     Active Substance: INSULIN GLARGINE
  10. NORETHINDRONE ACETATE [Concomitant]
     Active Substance: NORETHINDRONE ACETATE
  11. PROGRAF [Concomitant]
     Active Substance: TACROLIMUS
  12. PREDNISONE [Concomitant]
     Active Substance: PREDNISONE
  13. OMEPRAZOLE [Concomitant]
     Active Substance: OMEPRAZOLE
  14. MAGNESIUM [Concomitant]
     Active Substance: MAGNESIUM
  15. FOLIC ACID [Concomitant]
     Active Substance: FOLIC ACID
  16. MELATONIN [Concomitant]
     Active Substance: MELATONIN
  17. FERROUS SULFATE [Concomitant]
     Active Substance: FERROUS SULFATE
  18. AMLODIPINE [Concomitant]
     Active Substance: AMLODIPINE BESYLATE
  19. VITAMIN C [Concomitant]
     Active Substance: ASCORBIC ACID
  20. CALCIUM [Concomitant]
     Active Substance: CALCIUM
  21. ESBRIET [Concomitant]
     Active Substance: PIRFENIDONE
  22. CARVEDILOL [Concomitant]
     Active Substance: CARVEDILOL
  23. AZITHROMYCIN [Concomitant]
     Active Substance: AZITHROMYCIN
  24. VITAMIN D NOS [Concomitant]
     Active Substance: CHOLECALCIFEROL\ERGOCALCIFEROL
  25. MUPIROCIN [Concomitant]
     Active Substance: MUPIROCIN
  26. ZENPEP [Concomitant]
     Active Substance: PANCRELIPASE AMYLASE\PANCRELIPASE LIPASE\PANCRELIPASE PROTEASE

REACTIONS (1)
  - Cystic fibrosis [Unknown]
